FAERS Safety Report 10506985 (Version 7)
Quarter: 2016Q2

REPORT INFORMATION
  Report Type: Spontaneous
  Country: JP (occurrence: JP)
  Receive Date: 20141009
  Receipt Date: 20160606
  Transmission Date: 20160815
  Serious: Yes (Hospitalization)
  Sender: FDA-Public Use
  Company Number: JP-ABBVIE-14P-087-1292405-00

PATIENT
  Age: 63 Year
  Sex: Male
  Weight: 57 kg

DRUGS (22)
  1. ISONIAZID. [Concomitant]
     Active Substance: ISONIAZID
     Indication: PROPHYLAXIS
     Route: 048
     Dates: start: 20130809
  2. HUMIRA [Suspect]
     Active Substance: ADALIMUMAB
     Route: 058
     Dates: start: 20141001
  3. BEPOTASTINE BESILATE [Concomitant]
     Active Substance: BEPOTASTINE BESILATE
     Indication: PRURITUS
     Route: 048
     Dates: start: 20110513
  4. RABEPRAZOLE SODIUM. [Concomitant]
     Active Substance: RABEPRAZOLE SODIUM
     Indication: PROPHYLAXIS AGAINST GASTROINTESTINAL ULCER
     Route: 048
     Dates: start: 2013
  5. HUMIRA [Suspect]
     Active Substance: ADALIMUMAB
     Indication: PSORIATIC ARTHROPATHY
     Route: 058
     Dates: start: 20140204, end: 20140218
  6. PREDNISOLONE. [Concomitant]
     Active Substance: PREDNISOLONE
     Route: 065
     Dates: start: 20140429
  7. ALENDRONATE SODIUM HYDRATE [Concomitant]
     Active Substance: ALENDRONATE SODIUM
     Indication: OSTEOPOROSIS
  8. CELECOXIB. [Concomitant]
     Active Substance: CELECOXIB
     Indication: PAIN
     Route: 048
     Dates: start: 20130705
  9. TEPRENONE [Concomitant]
     Active Substance: TEPRENONE
     Indication: ANALGESIC INTERVENTION SUPPORTIVE THERAPY
  10. DIFLUPREDNATE [Concomitant]
     Active Substance: DIFLUPREDNATE
     Indication: RASH
     Route: 061
     Dates: start: 20120413
  11. DIFLUPREDNATE [Concomitant]
     Active Substance: DIFLUPREDNATE
     Indication: PSORIASIS
  12. PREDNISOLONE. [Concomitant]
     Active Substance: PREDNISOLONE
     Route: 065
  13. ALENDRONATE SODIUM HYDRATE [Concomitant]
     Active Substance: ALENDRONATE SODIUM
     Indication: OSTEOPOROSIS PROPHYLAXIS
     Route: 048
     Dates: start: 20130820
  14. HUMIRA [Suspect]
     Active Substance: ADALIMUMAB
     Route: 058
     Dates: end: 20141014
  15. TEPRENONE [Concomitant]
     Active Substance: TEPRENONE
     Indication: GASTROINTESTINAL DISORDER
     Route: 048
     Dates: start: 20110513
  16. ALLOPURINOL. [Concomitant]
     Active Substance: ALLOPURINOL
     Indication: HYPERURICAEMIA
     Route: 048
     Dates: start: 20131217
  17. PREDNISOLONE. [Concomitant]
     Active Substance: PREDNISOLONE
     Route: 065
     Dates: start: 20140520
  18. SULFAMETHOXAZOLE AND TRIMETHOPRIM [Concomitant]
     Active Substance: SULFAMETHOXAZOLE\TRIMETHOPRIM
     Indication: PROPHYLAXIS
     Dosage: 1 TAB/DAY ON MONDAYS, WEDNESDAYS AND FRIDAYS
     Route: 048
     Dates: start: 20130806
  19. PYRIDOXAL PHOSPHATE HYDRATE [Concomitant]
     Indication: PROPHYLAXIS
     Route: 048
     Dates: start: 20130809
  20. PREDNISOLONE. [Concomitant]
     Active Substance: PREDNISOLONE
     Indication: EOSINOPHILIC PNEUMONIA
     Route: 065
     Dates: start: 20130810
  21. PREDNISOLONE. [Concomitant]
     Active Substance: PREDNISOLONE
     Route: 065
     Dates: start: 20140416
  22. PREDNISOLONE. [Concomitant]
     Active Substance: PREDNISOLONE
     Route: 065

REACTIONS (8)
  - Sepsis [Unknown]
  - Arthritis [Unknown]
  - Finger deformity [Recovering/Resolving]
  - Joint swelling [Recovering/Resolving]
  - Psoriasis [Unknown]
  - Dermatitis exfoliative [Recovering/Resolving]
  - Subcutaneous abscess [Unknown]
  - Eosinophilic pneumonia [Not Recovered/Not Resolved]

NARRATIVE: CASE EVENT DATE: 20140204
